FAERS Safety Report 4933365-2 (Version None)
Quarter: 2006Q1

REPORT INFORMATION
  Report Type: 
  Country: None (occurrence: None)
  Receive Date: 20060306
  Receipt Date: 20050315
  Transmission Date: 20060701
  Serious: Yes (Hospitalization)
  Sender: FDA-Public Use
  Company Number: US-MERCK-0503USA03196

PATIENT
  Age: 63 Year
  Sex: Female
  Weight: 76 kg

DRUGS (3)
  1. VIOXX [Suspect]
     Indication: ARTHRITIS
     Route: 048
     Dates: start: 19990101, end: 20040101
  2. ASPIRIN [Concomitant]
     Route: 065
  3. LASIX [Concomitant]
     Route: 065

REACTIONS (9)
  - CARDIAC FAILURE [None]
  - CEREBROVASCULAR ACCIDENT [None]
  - CHEST PAIN [None]
  - CHOLELITHIASIS [None]
  - HEPATOCELLULAR DAMAGE [None]
  - INJURY [None]
  - MYOCARDIAL INFARCTION [None]
  - RENAL DISORDER [None]
  - THROMBOSIS [None]
